FAERS Safety Report 4749866-6 (Version None)
Quarter: 2005Q3

REPORT INFORMATION
  Report Type: 
  Country: None (occurrence: None)
  Receive Date: 20050822
  Receipt Date: 20050627
  Transmission Date: 20060218
  Serious: Yes (Hospitalization)
  Sender: FDA-Public Use
  Company Number: US-BRISTOL-MYERS SQUIBB COMPANY-13017553

PATIENT
  Age: 81 Year
  Sex: Male

DRUGS (5)
  1. CARDIOLITE [Suspect]
     Indication: SHOULDER PAIN
     Dosage: DOSE VALUE:  ^QC 96.97%^
     Route: 042
     Dates: start: 20050624, end: 20050624
  2. LOPRESSOR [Concomitant]
     Route: 048
  3. ECOTRIN [Concomitant]
     Route: 048
  4. ZOCOR [Concomitant]
     Route: 048
  5. CARISOPRODOL [Concomitant]
     Route: 048

REACTIONS (2)
  - PHARYNGOLARYNGEAL PAIN [None]
  - SYNCOPE VASOVAGAL [None]
